FAERS Safety Report 15759698 (Version 3)
Quarter: 2019Q1

REPORT INFORMATION
  Report Type: Spontaneous
  Country: FR (occurrence: FR)
  Receive Date: 20181226
  Receipt Date: 20190123
  Transmission Date: 20190417
  Serious: Yes (Other)
  Sender: FDA-Public Use
  Company Number: FR-ROCHE-2234453

PATIENT
  Age: 31 Year
  Sex: Female
  Weight: 83 kg

DRUGS (1)
  1. ROACTEMRA [Suspect]
     Active Substance: TOCILIZUMAB
     Indication: ANKYLOSING SPONDYLITIS
     Route: 058
     Dates: start: 20181204, end: 20181218

REACTIONS (18)
  - Paraesthesia [Recovered/Resolved]
  - Lip swelling [Recovering/Resolving]
  - Injection site reaction [Unknown]
  - Vomiting [Recovering/Resolving]
  - Vision blurred [Recovering/Resolving]
  - Vertigo [Recovering/Resolving]
  - Swelling face [Recovered/Resolved]
  - Blindness [Recovering/Resolving]
  - Malaise [Recovering/Resolving]
  - Intentional product use issue [Unknown]
  - Headache [Recovered/Resolved]
  - Mouth swelling [Recovering/Resolving]
  - Abdominal pain upper [Recovering/Resolving]
  - Nausea [Recovering/Resolving]
  - Asthenia [Recovering/Resolving]
  - Hypersensitivity [Recovered/Resolved]
  - Sensory loss [Recovered/Resolved]
  - Off label use [Unknown]

NARRATIVE: CASE EVENT DATE: 20181221
